FAERS Safety Report 5283169-9 (Version None)
Quarter: 2007Q2

REPORT INFORMATION
  Report Type: 
  Country: None (occurrence: None)
  Receive Date: 20070402
  Receipt Date: 20070330
  Transmission Date: 20071010
  Serious: Yes (Congenital Anomaly)
  Sender: FDA-Public Use
  Company Number: US-GLAXOSMITHKLINE-A0615658A

PATIENT
  Sex: Male
  Weight: 1.4 kg

DRUGS (2)
  1. TRIZIVIR [Suspect]
     Indication: HIV INFECTION
     Dosage: 2TAB PER DAY
     Dates: start: 20060330, end: 20060512
  2. RETROVIR [Suspect]
     Indication: HIV INFECTION
     Dosage: 423MG PER DAY
     Dates: start: 20060510, end: 20060510

REACTIONS (8)
  - ARACHNOID CYST [None]
  - ATRIOVENTRICULAR SEPTAL DEFECT [None]
  - CONGENITAL HYDRONEPHROSIS [None]
  - CONGENITAL MUSCULOSKELETAL ANOMALY [None]
  - DRUG EXPOSURE DURING PREGNANCY [None]
  - INTERRUPTION OF AORTIC ARCH [None]
  - PATENT DUCTUS ARTERIOSUS [None]
  - UMBILICAL CORD ABNORMALITY [None]
